FAERS Safety Report 13924947 (Version 2)
Quarter: 2017Q4

REPORT INFORMATION
  Report Type: Report from Study
  Country: US (occurrence: US)
  Receive Date: 20170831
  Receipt Date: 20171003
  Transmission Date: 20180320
  Serious: No
  Sender: FDA-Public Use
  Company Number: US-009507513-1708USA009869

PATIENT
  Sex: Female
  Weight: 71.2 kg

DRUGS (2)
  1. IMPLANON [Suspect]
     Active Substance: ETONOGESTREL
     Dosage: ONE ROD PER 3 YEARS
     Route: 059
     Dates: start: 20170822, end: 20170822
  2. IMPLANON [Suspect]
     Active Substance: ETONOGESTREL
     Dosage: ONE ROD PER 3 YEARS
     Route: 059
     Dates: start: 201708

REACTIONS (2)
  - No adverse event [Unknown]
  - Device difficult to use [Recovered/Resolved]

NARRATIVE: CASE EVENT DATE: 20170822
